FAERS Safety Report 5829466-7 (Version None)
Quarter: 2008Q2

REPORT INFORMATION
  Report Type: 
  Country: None (occurrence: None)
  Receive Date: 20080601
  Receipt Date: 20080219
  Transmission Date: 20081010
  Serious: No
  Sender: FDA-Public Use
  Company Number: US200802004523

PATIENT
  Age: 56 Year
  Sex: Female
  Weight: 71.7 kg

DRUGS (7)
  1. BYETTA [Suspect]
     Indication: TYPE 2 DIABETES MELLITUS
     Dosage: 5 UG, 2/D, SUBCUTANEOUS
     Route: 058
     Dates: start: 20080206
  2. ACTOS /USA/ (PIOGLITAZONE HYDROCHLORIDE) [Concomitant]
  3. METFORMIN HCL [Concomitant]
  4. GLIPIZIDE [Concomitant]
  5. TRICOR [Concomitant]
  6. LIPITOR [Concomitant]
  7. COUMADIN [Concomitant]

REACTIONS (4)
  - BLOOD GLUCOSE INCREASED [None]
  - DRUG INEFFECTIVE [None]
  - NAUSEA [None]
  - WEIGHT DECREASED [None]
